FAERS Safety Report 10190529 (Version 1)
Quarter: 2014Q2

REPORT INFORMATION
  Report Type: Spontaneous
  Country: GB (occurrence: GB)
  Receive Date: 20140523
  Receipt Date: 20140523
  Transmission Date: 20141212
  Serious: Yes (Other)
  Sender: FDA-Public Use
  Company Number: PHHY2014GB060977

PATIENT
  Age: 46 Year
  Sex: Female

DRUGS (2)
  1. CISPLATIN [Suspect]
     Indication: LUNG ADENOCARCINOMA
     Dates: end: 200711
  2. VINORELBINE [Suspect]
     Indication: LUNG ADENOCARCINOMA
     Dates: end: 200711

REACTIONS (4)
  - Aphasia [Unknown]
  - Convulsion [Unknown]
  - Metastases to central nervous system [Unknown]
  - Lung adenocarcinoma recurrent [Unknown]
